FAERS Safety Report 16759687 (Version 1)
Quarter: 2019Q3

REPORT INFORMATION
  Report Type: Spontaneous
  Country: GB (occurrence: GB)
  Receive Date: 20190830
  Receipt Date: 20190830
  Transmission Date: 20191005
  Serious: Yes (Hospitalization)
  Sender: FDA-Public Use
  Company Number: GB-PFIZER INC-2019366610

PATIENT
  Age: 81 Year
  Sex: Male

DRUGS (14)
  1. TAMSULOSIN [Suspect]
     Active Substance: TAMSULOSIN
     Dosage: 400 UG, 1X/DAY
  2. FOSTAIR [Concomitant]
     Active Substance: BECLOMETHASONE\FORMOTEROL
     Dosage: 4 DF, 1X/DAY (PUFFS. 100MICROGRAMS/DOSE / 6MICROGRAMS)
     Route: 055
  3. WARFARIN [Suspect]
     Active Substance: WARFARIN
     Indication: MITRAL VALVE DISEASE
     Dosage: UNK
  4. ATENOLOL. [Concomitant]
     Active Substance: ATENOLOL
     Dosage: 25 MG, 1X/DAY
  5. ATORVASTATIN CALCIUM. [Suspect]
     Active Substance: ATORVASTATIN CALCIUM
     Dosage: 10 MG, 1X/DAY
  6. CARBOCISTEINE [Concomitant]
     Active Substance: CARBOCYSTEINE
     Dosage: 2250 MG, 1X/DAY
  7. IPRATROPIUM [Concomitant]
     Active Substance: IPRATROPIUM
     Dosage: 1 DF, AS NEEDED (500MICROGRAMS/2ML. EVERY 4-6 HOURS)
  8. CLARITHROMYCIN. [Concomitant]
     Active Substance: CLARITHROMYCIN
     Dosage: UNK
  9. SPIRIVA [Concomitant]
     Active Substance: TIOTROPIUM BROMIDE MONOHYDRATE
     Dosage: 5 UG, 1X/DAY (PUFFS)
     Route: 055
  10. ALLOPURINOL. [Concomitant]
     Active Substance: ALLOPURINOL
     Dosage: 200 MG, 1X/DAY
  11. TIOTROPIUM BROMIDE [Concomitant]
     Active Substance: TIOTROPIUM BROMIDE
     Dosage: 2.5 UG, UNK
     Route: 055
  12. VENTOLIN [Concomitant]
     Active Substance: ALBUTEROL SULFATE
     Dosage: 100 UG, UNK (ONE OR TWO PUFFS TO BE INHALED UP TO FOUR TIMES A DAY)(EVOHALER)
     Route: 055
  13. FOLIC ACID. [Concomitant]
     Active Substance: FOLIC ACID
     Dosage: 5 MG, 1X/DAY
  14. SALBUTAMOL [Concomitant]
     Active Substance: ALBUTEROL
     Dosage: UNK

REACTIONS (2)
  - Hypotension [Unknown]
  - Epistaxis [Unknown]
